FAERS Safety Report 5969367-7 (Version None)
Quarter: 2008Q4

REPORT INFORMATION
  Report Type: 
  Country: None (occurrence: None)
  Receive Date: 20081126
  Receipt Date: 20081118
  Transmission Date: 20090506
  Serious: Yes (Hospitalization, Other)
  Sender: FDA-Public Use
  Company Number: US-PFIZER INC-2008078421

PATIENT
  Sex: Female
  Weight: 79.4 kg

DRUGS (7)
  1. NEURONTIN [Suspect]
     Indication: CARPAL TUNNEL SYNDROME
     Dates: start: 20000501, end: 20040101
  2. NEURONTIN [Suspect]
     Indication: NECK INJURY
  3. BEXTRA [Suspect]
     Dates: end: 20040101
  4. NAPROSYN [Suspect]
     Dates: end: 20040101
  5. DILANTIN [Concomitant]
  6. IBUPROFEN TABLETS [Concomitant]
  7. DEPAKOTE [Concomitant]

REACTIONS (20)
  - AGGRESSION [None]
  - CARDIOVASCULAR DISORDER [None]
  - CONFUSIONAL STATE [None]
  - CONSTIPATION [None]
  - CONVULSION [None]
  - DIABETES MELLITUS [None]
  - GASTROINTESTINAL HAEMORRHAGE [None]
  - HAEMATOCHEZIA [None]
  - HALLUCINATION [None]
  - HEADACHE [None]
  - HYPERTENSION [None]
  - HYPOAESTHESIA [None]
  - INTERVERTEBRAL DISC PROTRUSION [None]
  - PARAESTHESIA [None]
  - PSYCHOTIC DISORDER [None]
  - SPEECH DISORDER [None]
  - TENOSYNOVITIS STENOSANS [None]
  - TINNITUS [None]
  - VERTIGO [None]
  - WEIGHT DECREASED [None]
